FAERS Safety Report 6979304-4 (Version None)
Quarter: 2010Q3

REPORT INFORMATION
  Report Type: 
  Country: None (occurrence: None)
  Receive Date: 20100913
  Receipt Date: 20100901
  Transmission Date: 20110219
  Serious: Yes (Hospitalization)
  Sender: FDA-Public Use
  Company Number: ES-ELI_LILLY_AND_COMPANY-ES201009000545

PATIENT
  Sex: Female
  Weight: 70 kg

DRUGS (15)
  1. FORTEO [Suspect]
     Indication: OSTEOPOROSIS
     Dosage: 20 UG, DAILY (1/D)
     Route: 058
     Dates: start: 20091105, end: 20100721
  2. EMCONCOR [Concomitant]
     Dosage: 5 MG, 1/2 48 HOUR
     Route: 048
     Dates: start: 20100701
  3. PREVENCOR [Concomitant]
     Indication: BLOOD CHOLESTEROL
     Dosage: 10 MG, DAILY (1/D)
     Route: 048
     Dates: start: 20100701
  4. DEPRAX [Concomitant]
     Dosage: 100 MG, DAILY (1/D)
     Route: 048
  5. TIADIPONA [Concomitant]
     Indication: DEPRESSION
     Dosage: 25 MG, 3/D
     Route: 048
  6. PARAPRES [Concomitant]
     Indication: HYPERTENSION
     Dosage: 36 MG, DAILY (1/D)
     Route: 048
     Dates: start: 20100701
  7. ASPIRIN [Concomitant]
     Dosage: 100 MG, DAILY (1/D)
     Route: 048
  8. DAFLON [Concomitant]
     Dosage: UNK, 2/D
     Route: 048
  9. FUROSEMIDE [Concomitant]
     Indication: DIURETIC THERAPY
     Dosage: 40 MG, 1 AND A HALF DAILY (1/D)
     Route: 048
  10. OSVICAL D [Concomitant]
     Indication: OSTEOPOROSIS
     Dosage: 600 MG, 2/D
     Route: 048
  11. FOSAMAX [Concomitant]
     Indication: OSTEOPOROSIS
     Dosage: 7/WEEK
     Route: 048
     Dates: end: 20100701
  12. NEXIUM [Concomitant]
     Dosage: 20 MG, 2/D
     Route: 048
  13. ZALDIAR [Concomitant]
     Indication: PAIN
     Dosage: UNK, 2/D
     Route: 048
  14. VISCOFRESH [Concomitant]
     Indication: CATARACT
     Dosage: UNK, 2/D
     Route: 047
  15. SICCAFLUID [Concomitant]
     Dosage: 2 DROPS IF ITCHY, AS NEEDED
     Route: 047

REACTIONS (2)
  - ACUTE MYOCARDIAL INFARCTION [None]
  - HYPERTENSION [None]
